FAERS Safety Report 6616744-7 (Version None)
Quarter: 2010Q1

REPORT INFORMATION
  Report Type: 
  Country: None (occurrence: None)
  Receive Date: 20100305
  Receipt Date: 20100305
  Transmission Date: 20100710
  Serious: Yes (Hospitalization)
  Sender: FDA-Public Use
  Company Number: TR-ABBOTT-10P-161-0625140-00

PATIENT
  Age: 76 Year
  Sex: Female
  Weight: 75 kg

DRUGS (4)
  1. TARKA [Suspect]
     Indication: HYPERTENSION
     Dosage: 2/180MG DAILY
     Route: 048
     Dates: end: 20100208
  2. EXFORGE [Suspect]
     Indication: HYPERTENSION
     Route: 048
     Dates: end: 20100208
  3. EXFORGE [Concomitant]
     Route: 048
     Dates: end: 20100208
  4. DIGOXIN [Concomitant]
     Indication: CARDIAC FAILURE CHRONIC
     Route: 048
     Dates: end: 20100208

REACTIONS (3)
  - ASTHENIA [None]
  - BRADYCARDIA [None]
  - HYPERKALAEMIA [None]
